FAERS Safety Report 6762945-7 (Version None)
Quarter: 2010Q2

REPORT INFORMATION
  Report Type: 
  Country: None (occurrence: None)
  Receive Date: 20100608
  Receipt Date: 20100608
  Transmission Date: 20101027
  Serious: Yes (Other)
  Sender: FDA-Public Use
  Company Number: None

PATIENT
  Age: 34 Year
  Sex: Female

DRUGS (2)
  1. NOVOLOG [Suspect]
  2. NOVOLOG [Suspect]

REACTIONS (2)
  - BLOOD GLUCOSE INCREASED [None]
  - DEVICE FAILURE [None]
